FAERS Safety Report 7640091-8 (Version None)
Quarter: 2011Q3

REPORT INFORMATION
  Report Type: 
  Country: None (occurrence: None)
  Receive Date: 20110727
  Receipt Date: 20110719
  Transmission Date: 20111222
  Serious: Yes (Death, Other)
  Sender: FDA-Public Use
  Company Number: JP-AMGEN-JPNCT2011031993

PATIENT
  Age: 76 Year
  Sex: Female
  Weight: 34 kg

DRUGS (15)
  1. IRINOTECAN HCL [Suspect]
     Indication: COLORECTAL CANCER
     Route: 041
     Dates: start: 20100922, end: 20101222
  2. ERBITUX [Suspect]
     Indication: COLORECTAL CANCER
     Dosage: UNK UNK, Q6MO
     Route: 041
     Dates: start: 20090801, end: 20100901
  3. HIRUDOID [Concomitant]
     Indication: DRY SKIN
     Dosage: UNK
     Route: 062
  4. ALLOPURINOL [Concomitant]
     Dosage: UNK
     Route: 049
  5. MYSER [Concomitant]
     Indication: RASH
     Dosage: UNK
     Route: 062
  6. PANITUMUMAB [Suspect]
     Indication: COLORECTAL CANCER
     Dosage: 6 MG/KG, Q2WK
     Route: 041
     Dates: start: 20100922, end: 20100922
  7. KINDAVATE [Concomitant]
     Indication: RASH
     Dosage: UNK
     Route: 062
  8. ALDACTONE [Concomitant]
     Indication: OEDEMA
     Dosage: UNK
     Route: 048
  9. SAIREI-TO [Concomitant]
     Indication: NEUROPATHY PERIPHERAL
     Dosage: UNK
     Route: 048
  10. MAGNESIUM SULFATE [Concomitant]
     Dosage: UNK
     Route: 048
  11. LASIX [Concomitant]
     Indication: OEDEMA
     Dosage: UNK
     Route: 048
  12. CORTICOSTEROIDS [Concomitant]
     Indication: PROPHYLAXIS
     Dosage: UNK
     Route: 065
  13. PANITUMUMAB [Suspect]
     Dosage: 6 MG/KG, Q2WK
     Route: 041
     Dates: start: 20101020, end: 20110316
  14. DEXAMETHASONE SODIUM PHOSPHATE [Concomitant]
     Dosage: UNK
     Route: 042
  15. GRANISETRON [Concomitant]
     Dosage: UNK
     Route: 042

REACTIONS (3)
  - HYPOMAGNESAEMIA [None]
  - NEUTROPHIL COUNT DECREASED [None]
  - COLORECTAL CANCER [None]
